FAERS Safety Report 21825478 (Version 1)
Quarter: 2023Q1

REPORT INFORMATION
  Report Type: Spontaneous
  Country: US (occurrence: None)
  Receive Date: 20230105
  Receipt Date: 20230105
  Transmission Date: 20230417
  Serious: No
  Sender: FDA-Public Use
  Company Number: None

PATIENT
  Age: 43 Year
  Sex: Male
  Weight: 102.06 kg

DRUGS (7)
  1. FARXIGA [Suspect]
     Active Substance: DAPAGLIFLOZIN PROPANEDIOL
     Indication: Vaccination error
     Dates: start: 20210611
  2. TETANUS TOXOID, REDUCED DIPHTHERIA TOXOID AND ACELLULAR PERTUSSIS VACC [Suspect]
     Active Substance: TETANUS TOXOID, REDUCED DIPHTHERIA TOXOID AND ACELLULAR PERTUSSIS VACCINE ADSORBED, TDAP
  3. BACLOFEN [Concomitant]
     Active Substance: BACLOFEN
  4. FISH OIL\OMEGA-3 FATTY ACIDS [Concomitant]
     Active Substance: FISH OIL\OMEGA-3 FATTY ACIDS
  5. LEVOMEFOLATE CALCIUM [Concomitant]
     Active Substance: LEVOMEFOLATE CALCIUM
  6. AMLODIPINE BESYLATE\BENAZEPRIL HYDROCHLORIDE [Concomitant]
     Active Substance: AMLODIPINE BESYLATE\BENAZEPRIL HYDROCHLORIDE
  7. VITAMIN D [Concomitant]
     Active Substance: VITAMIN D NOS

REACTIONS (27)
  - Fungal infection [None]
  - Urinary tract infection [None]
  - Nervous system disorder [None]
  - Confusional state [None]
  - Tinnitus [None]
  - Pruritus [None]
  - Hypoaesthesia [None]
  - Paraesthesia [None]
  - Chills [None]
  - Dizziness [None]
  - Heart rate irregular [None]
  - Central pain syndrome [None]
  - Loss of consciousness [None]
  - Back pain [None]
  - Arthralgia [None]
  - Muscular weakness [None]
  - Panic attack [None]
  - Hypersensitivity [None]
  - Anaphylactic shock [None]
  - Gastric disorder [None]
  - Logorrhoea [None]
  - Irritability [None]
  - Hypersensitivity [None]
  - Product prescribing issue [None]
  - Formication [None]
  - Thyroid disorder [None]
  - Burning sensation [None]

NARRATIVE: CASE EVENT DATE: 20210614
